FAERS Safety Report 17721169 (Version 1)
Quarter: 2020Q2

REPORT INFORMATION
  Report Type: Spontaneous
  Country: FR (occurrence: FR)
  Receive Date: 20200429
  Receipt Date: 20200429
  Transmission Date: 20200714
  Serious: Yes (Hospitalization)
  Sender: FDA-Public Use
  Company Number: FR-TEVA-2020-FR-1227040

PATIENT
  Age: 75 Year
  Sex: Male
  Weight: 90 kg

DRUGS (4)
  1. ROCEPHINE [Concomitant]
     Active Substance: CEFTRIAXONE SODIUM
  2. DICLOFENAC [Suspect]
     Active Substance: DICLOFENAC
     Indication: RESPIRATORY TRACT INFECTION
     Route: 048
     Dates: start: 202003, end: 202003
  3. TRIFLUCAN [Concomitant]
     Active Substance: FLUCONAZOLE
  4. INEXIUM [Concomitant]
     Active Substance: ESOMEPRAZOLE

REACTIONS (2)
  - Pneumonia [Not Recovered/Not Resolved]
  - Respiratory distress [Not Recovered/Not Resolved]

NARRATIVE: CASE EVENT DATE: 202003
